FAERS Safety Report 9554416 (Version 2)
Quarter: 2013Q3

REPORT INFORMATION
  Report Type: Spontaneous
  Country: US (occurrence: US)
  Receive Date: 20130925
  Receipt Date: 20130925
  Transmission Date: 20140515
  Serious: Yes (Death, Other)
  Sender: FDA-Public Use
  Company Number: US-B.I. PHARMACEUTICALS,INC./RIDGEFIELD-2013-BI-29260BP

PATIENT
  Age: 8 Decade
  Sex: Female

DRUGS (2)
  1. PRADAXA [Suspect]
  2. MULTIPLE CONCOMITANT MEDICATION [Concomitant]

REACTIONS (5)
  - Hepatic failure [Fatal]
  - Multi-organ failure [Unknown]
  - Pneumonia [Unknown]
  - Urinary tract infection [Unknown]
  - Hepatic enzyme increased [Unknown]
